FAERS Safety Report 7931420-6 (Version None)
Quarter: 2011Q4

REPORT INFORMATION
  Report Type: 
  Country: None (occurrence: None)
  Receive Date: 20111121
  Receipt Date: 20111111
  Transmission Date: 20120403
  Serious: Yes (Hospitalization)
  Sender: FDA-Public Use
  Company Number: US-ASTRAZENECA-2011SE68834

PATIENT
  Age: 47 Year
  Sex: Female

DRUGS (1)
  1. SEROQUEL XR [Suspect]
     Indication: PSYCHOTIC DISORDER
     Route: 048

REACTIONS (4)
  - MENTAL DISORDER [None]
  - DRUG DOSE OMISSION [None]
  - EAR INFECTION [None]
  - HALLUCINATION, AUDITORY [None]
